FAERS Safety Report 4541183-2 (Version None)
Quarter: 2004Q4

REPORT INFORMATION
  Report Type: 
  Country: None (occurrence: None)
  Receive Date: 20041227
  Receipt Date: 20041213
  Transmission Date: 20050328
  Serious: Yes (Other)
  Sender: FDA-Public Use
  Company Number: 2004-DE-06204GD

PATIENT
  Sex: 0

DRUGS (6)
  1. CLONIDINE HCL [Suspect]
     Dosage: 75 MCG PO ONCE
     Route: 048
  2. PREDNISONE [Suspect]
     Dosage: 2 MG PO ONCE
     Route: 048
  3. CHLOROQUINE      (CHLOROQUINE) [Suspect]
     Dosage: 150 MG PO ONCE
     Route: 048
  4. CALCIUM CARBONATE           (CALCIUM CARBONATE) [Suspect]
     Dosage: 600 MG PO
     Route: 048
  5. ECHINACEA (ECHINACEA SPP.) (TA) [Suspect]
     Dosage: TWO TABLETS PO ONCE
     Route: 048
  6. EVENING PRIMROSE OIL (OENOTHERA BIENNIS OIL) (TA) [Suspect]
     Dosage: ONE TABLET PO ONCE
     Route: 048

REACTIONS (2)
  - ACCIDENTAL EXPOSURE [None]
  - DRUG TOXICITY [None]
